FAERS Safety Report 5268712-8 (Version None)
Quarter: 2007Q1

REPORT INFORMATION
  Report Type: 
  Country: None (occurrence: None)
  Receive Date: 20061213
  Receipt Date: 20031006
  Transmission Date: 20070707
  Serious: No
  Sender: FDA-Public Use
  Company Number: 2003UW12825

PATIENT
  Age: 29 Year
  Sex: Male
  Weight: 76.2043 kg

DRUGS (3)
  1. IRESSA [Suspect]
     Indication: NON-SMALL CELL LUNG CANCER
     Dates: start: 20030801, end: 20030901
  2. IRESSA [Suspect]
     Indication: NON-SMALL CELL LUNG CANCER
     Dosage: DOUBLED DOSE
     Dates: start: 20030901
  3. CELEBREX [Suspect]

REACTIONS (2)
  - DISEASE PROGRESSION [None]
  - RASH [None]
